FAERS Safety Report 20110345 (Version 3)
Quarter: 2021Q4

REPORT INFORMATION
  Report Type: Spontaneous
  Country: US (occurrence: US)
  Receive Date: 20211124
  Receipt Date: 20211214
  Transmission Date: 20220303
  Serious: Yes (Hospitalization)
  Sender: FDA-Public Use
  Company Number: US-NOVOPROD-780483

PATIENT
  Age: 82 Year
  Sex: Male

DRUGS (3)
  1. LEVEMIR [Suspect]
     Active Substance: INSULIN DETEMIR
     Indication: Product used for unknown indication
     Dosage: UNK
     Route: 065
     Dates: start: 202011, end: 20201127
  2. NOVOLOG [Suspect]
     Active Substance: INSULIN ASPART
     Indication: Product used for unknown indication
     Dosage: UNK
     Route: 065
     Dates: start: 202011, end: 20201127
  3. NOVOLIN N [Suspect]
     Active Substance: INSULIN HUMAN
     Indication: Product used for unknown indication
     Dosage: WITH FEEDS VIA FEEDING TUBE
     Route: 065
     Dates: start: 202011, end: 20201127

REACTIONS (7)
  - Blood glucose fluctuation [Recovered/Resolved]
  - Product administration error [Recovered/Resolved]
  - Gait disturbance [Recovered/Resolved]
  - Confusional state [Recovered/Resolved]
  - Balance disorder [Recovered/Resolved]
  - Ill-defined disorder [Recovered/Resolved]
  - Post procedural complication [Recovered/Resolved]

NARRATIVE: CASE EVENT DATE: 20201101
